FAERS Safety Report 21509156 (Version 3)
Quarter: 2022Q4

REPORT INFORMATION
  Report Type: Report from Study
  Country: US (occurrence: US)
  Receive Date: 20221026
  Receipt Date: 20221222
  Transmission Date: 20230112
  Serious: Yes (Other)
  Sender: FDA-Public Use
  Company Number: US-JNJFOC-20220903323

PATIENT
  Sex: Female

DRUGS (3)
  1. STELARA [Suspect]
     Active Substance: USTEKINUMAB
     Indication: Crohn^s disease
     Route: 058
  2. STELARA [Suspect]
     Active Substance: USTEKINUMAB
     Dosage: LAST DATE OF ADMINISTRATION WAS ON 15-OCT-2022.
     Route: 058
  3. PREDNISONE [Concomitant]
     Active Substance: PREDNISONE
     Indication: Intestinal mass

REACTIONS (6)
  - Injection site haematoma [Not Recovered/Not Resolved]
  - Crohn^s disease [Unknown]
  - Illness [Not Recovered/Not Resolved]
  - Colitis [Unknown]
  - Off label use [Unknown]
  - Therapeutic product effect decreased [Unknown]
